FAERS Safety Report 12370877 (Version 1)
Quarter: 2016Q2

REPORT INFORMATION
  Report Type: Spontaneous
  Country: US (occurrence: US)
  Receive Date: 20160516
  Receipt Date: 20160516
  Transmission Date: 20160815
  Serious: Yes (Other)
  Sender: FDA-Public Use
  Company Number: US-CIPLA LTD.-2016US04775

PATIENT

DRUGS (1)
  1. WARFARIN SODIUM. [Suspect]
     Active Substance: WARFARIN SODIUM
     Dosage: UNK
     Route: 048
     Dates: start: 20160329

REACTIONS (7)
  - Gait disturbance [Unknown]
  - Headache [Unknown]
  - Malaise [Unknown]
  - Influenza like illness [Unknown]
  - Product substitution issue [Unknown]
  - Paraesthesia [Unknown]
  - Visual impairment [Unknown]
